FAERS Safety Report 6719610-1 (Version None)
Quarter: 2010Q2

REPORT INFORMATION
  Report Type: 
  Country: None (occurrence: None)
  Receive Date: 20100511
  Receipt Date: 20100506
  Transmission Date: 20101027
  Serious: Yes (Hospitalization)
  Sender: FDA-Public Use
  Company Number: AT-WYE-G06090010

PATIENT
  Age: 29 Year
  Sex: Female

DRUGS (2)
  1. EFFEXOR XR [Suspect]
     Indication: BIPOLAR DISORDER
     Dosage: 75 MG ONCE
     Dates: start: 20100330, end: 20100330
  2. EDRONAX [Concomitant]
     Dosage: 8 MG DAILY DOSE
     Dates: start: 20080101, end: 20100328

REACTIONS (2)
  - HEADACHE [None]
  - HYPERTENSIVE CRISIS [None]
